FAERS Safety Report 5906279-9 (Version None)
Quarter: 2008Q4

REPORT INFORMATION
  Report Type: 
  Country: None (occurrence: None)
  Receive Date: 20081002
  Receipt Date: 20080920
  Transmission Date: 20090506
  Serious: Yes (Other)
  Sender: FDA-Public Use
  Company Number: AU-PFIZER INC-2008081078

PATIENT
  Sex: Female

DRUGS (1)
  1. CHANTIX [Suspect]
     Indication: SMOKING CESSATION THERAPY
     Dates: start: 20080901, end: 20080920

REACTIONS (6)
  - CHEST PAIN [None]
  - EMOTIONAL DISTRESS [None]
  - MALAISE [None]
  - NAUSEA [None]
  - PALPITATIONS [None]
  - PANIC ATTACK [None]
